FAERS Safety Report 17487749 (Version 3)
Quarter: 2020Q2

REPORT INFORMATION
  Report Type: Spontaneous
  Country: US (occurrence: US)
  Receive Date: 20200303
  Receipt Date: 20200610
  Transmission Date: 20200713
  Serious: No
  Sender: FDA-Public Use
  Company Number: US-VERTEX PHARMACEUTICALS-2020-003928

PATIENT
  Sex: Female
  Weight: 59 kg

DRUGS (5)
  1. INSULIN [Suspect]
     Active Substance: INSULIN NOS
     Indication: BLOOD GLUCOSE DECREASED
     Route: 065
  2. PULMOZYME [Concomitant]
     Active Substance: DORNASE ALFA
     Dosage: UNK
  3. SODIUM CHLORIDE. [Concomitant]
     Active Substance: SODIUM CHLORIDE
     Dosage: UNK
  4. TRIKAFTA [Suspect]
     Active Substance: ELEXACAFTOR\IVACAFTOR\TEZACAFTOR
     Dosage: 2 ORANGE TABLETS EVERY OTHER DAY (MONDAYS AND THURSDAYS)
     Route: 048
  5. TRIKAFTA [Suspect]
     Active Substance: ELEXACAFTOR\IVACAFTOR\TEZACAFTOR
     Indication: CYSTIC FIBROSIS
     Dosage: 2 ORANGE TABLETS QAM + 1 BLUE TABLET QPM, BID
     Route: 048

REACTIONS (10)
  - Abdominal distension [Unknown]
  - Menorrhagia [Unknown]
  - Abdominal discomfort [Unknown]
  - Dry skin [Unknown]
  - Diarrhoea [Unknown]
  - Cough [Unknown]
  - Blood glucose decreased [Unknown]
  - Joint swelling [Unknown]
  - Dysmenorrhoea [Unknown]
  - Constipation [Unknown]
